FAERS Safety Report 18552617 (Version 3)
Quarter: 2020Q4

REPORT INFORMATION
  Report Type: Spontaneous
  Country: US (occurrence: US)
  Receive Date: 20201127
  Receipt Date: 20201218
  Transmission Date: 20210114
  Serious: Yes (Life-Threatening, Other)
  Sender: FDA-Public Use
  Company Number: US-CELLTRION INC.-2020US032292

PATIENT

DRUGS (1)
  1. INFLECTRA [Suspect]
     Active Substance: INFLIXIMAB-DYYB
     Indication: PRODUCT USED FOR UNKNOWN INDICATION
     Dosage: TEN OF THE 100MG VIALS, BY INFUSION EVERY 28 DAYS

REACTIONS (3)
  - Appendicectomy [Recovering/Resolving]
  - Infection [Recovering/Resolving]
  - Malaise [Recovering/Resolving]
